FAERS Safety Report 9447665 (Version 1)
Quarter: 2013Q3

REPORT INFORMATION
  Report Type: Spontaneous
  Country: US (occurrence: US)
  Receive Date: 20130808
  Receipt Date: 20130808
  Transmission Date: 20140515
  Serious: Yes (Other)
  Sender: FDA-Public Use
  Company Number: US-JNJFOC-20130801420

PATIENT
  Sex: 0

DRUGS (2)
  1. PANCRELIPASE [Suspect]
     Indication: PANCREATITIS
     Route: 065
  2. PANCRELIPASE [Suspect]
     Indication: PANCREATITIS
     Route: 065

REACTIONS (1)
  - Large intestinal obstruction [Unknown]
